FAERS Safety Report 8351980 (Version 2)
Quarter: 2013Q3

REPORT INFORMATION
  Report Type: Report from Study
  Country: US (occurrence: US)
  Receive Date: 20120124
  Receipt Date: 20130926
  Transmission Date: 20140515
  Serious: Yes (Hospitalization, Other)
  Sender: FDA-Public Use
  Company Number: US-ACTELION-A-US2012-59657

PATIENT
  Age: 39 Year
  Sex: Female

DRUGS (1)
  1. TRACLEER [Suspect]
     Indication: PULMONARY ARTERIAL HYPERTENSION
     Dosage: UNK
     Route: 048
     Dates: start: 20060613

REACTIONS (8)
  - Convulsion [Unknown]
  - Gastric ulcer [Unknown]
  - Weight decreased [Unknown]
  - Dyspnoea exertional [Unknown]
  - Chest pain [Unknown]
  - Weight increased [Unknown]
  - Oedema [Unknown]
  - Stress [Unknown]
